FAERS Safety Report 7192170-X (Version None)
Quarter: 2010Q4

REPORT INFORMATION
  Report Type: 
  Country: None (occurrence: None)
  Receive Date: 20101223
  Receipt Date: 20101209
  Transmission Date: 20110411
  Serious: Yes (Other)
  Sender: FDA-Public Use
  Company Number: JP-BAYER-2010-003391

PATIENT
  Age: 75 Year
  Sex: Female

DRUGS (2)
  1. NEXAVAR [Suspect]
     Dosage: 400 MG, QD
     Route: 048
     Dates: start: 20101124
  2. NEXAVAR [Suspect]
     Dosage: 400 MG, QOD
     Route: 048
     Dates: start: 20101201

REACTIONS (1)
  - LIVER DISORDER [None]
